FAERS Safety Report 23974806 (Version 3)
Quarter: 2024Q3

REPORT INFORMATION
  Report Type: Spontaneous
  Country: US (occurrence: US)
  Receive Date: 20240614
  Receipt Date: 20240812
  Transmission Date: 20241017
  Serious: Yes (Hospitalization, Other)
  Sender: CSL BEHRING
  Company Number: US-BEH-2024173144

PATIENT
  Sex: Male

DRUGS (4)
  1. IDELVION [Suspect]
     Active Substance: COAGULATION FACTOR IX RECOMBINANT HUMAN
     Indication: Factor IX deficiency
     Dosage: 4000 IU, QW(3600-4400)
     Route: 042
     Dates: start: 202401
  2. IDELVION [Suspect]
     Active Substance: COAGULATION FACTOR IX RECOMBINANT HUMAN
     Indication: Factor IX deficiency
     Dosage: 4000 IU, QW(3600-4400)
     Route: 042
     Dates: start: 202401
  3. IDELVION [Suspect]
     Active Substance: COAGULATION FACTOR IX RECOMBINANT HUMAN
     Indication: Prophylaxis
     Dosage: 4000 IU, PRN (DAILY FOR BLEEDS)
     Route: 042
     Dates: start: 202401
  4. IDELVION [Suspect]
     Active Substance: COAGULATION FACTOR IX RECOMBINANT HUMAN
     Indication: Prophylaxis
     Dosage: 4000 IU, PRN (DAILY FOR BLEEDS)
     Route: 042
     Dates: start: 202401

REACTIONS (2)
  - Hospitalisation [Unknown]
  - Nasopharyngitis [Unknown]
